FAERS Safety Report 25243078 (Version 1)
Quarter: 2025Q2

REPORT INFORMATION
  Report Type: Spontaneous
  Country: FR (occurrence: FR)
  Receive Date: 20250428
  Receipt Date: 20250428
  Transmission Date: 20250716
  Serious: Yes (Hospitalization)
  Sender: CHEPLAPHARM
  Company Number: None

PATIENT
  Age: 46 Year
  Sex: Male

DRUGS (13)
  1. OLANZAPINE [Suspect]
     Active Substance: OLANZAPINE
     Dates: start: 202503
  2. OLANZAPINE [Suspect]
     Active Substance: OLANZAPINE
     Dosage: 20 MG 0-0-1?DAILY DOSE: 20 MILLIGRAM
  3. BROMAZEPAM [Suspect]
     Active Substance: BROMAZEPAM
     Dates: start: 202503
  4. OXYBATE [Suspect]
     Active Substance: OXYBATE
     Dates: start: 202503
  5. PILOCARPINE [Suspect]
     Active Substance: PILOCARPINE
     Dates: start: 202503
  6. CYAMEMAZINE [Suspect]
     Active Substance: CYAMEMAZINE
     Dates: start: 202503
  7. CYAMEMAZINE [Suspect]
     Active Substance: CYAMEMAZINE
  8. PROMETHAZINE [Suspect]
     Active Substance: PROMETHAZINE HYDROCHLORIDE
     Dates: start: 202503
  9. PAROXETINE [Suspect]
     Active Substance: PAROXETINE
     Dates: start: 202503
  10. PAROXETINE [Suspect]
     Active Substance: PAROXETINE
     Dosage: 20 MG 1-0-0?DAILY DOSE: 20 MILLIGRAM
  11. TRIMEPRAZINE [Suspect]
     Active Substance: TRIMEPRAZINE
     Dates: start: 202503
  12. COCAINE [Suspect]
     Active Substance: COCAINE
     Dates: start: 202503
  13. ALCOHOL [Suspect]
     Active Substance: ALCOHOL
     Dates: start: 202503

REACTIONS (5)
  - Drug abuse [Not Recovered/Not Resolved]
  - Poisoning [Recovered/Resolved]
  - Coma [Recovered/Resolved]
  - Pneumonia aspiration [Recovering/Resolving]
  - Miosis [Recovered/Resolved]

NARRATIVE: CASE EVENT DATE: 20250327
